FAERS Safety Report 17898772 (Version 5)
Quarter: 2024Q1

REPORT INFORMATION
  Report Type: Spontaneous
  Country: JP (occurrence: JP)
  Receive Date: 20200616
  Receipt Date: 20240328
  Transmission Date: 20240409
  Serious: Yes (Hospitalization, Other)
  Sender: FDA-Public Use
  Company Number: JP-MSD-2006JPN000985J

PATIENT
  Age: 59 Year
  Sex: Male

DRUGS (14)
  1. ISENTRESS [Suspect]
     Active Substance: RALTEGRAVIR POTASSIUM
     Indication: HIV infection
     Dosage: 800 MILLIGRAM/DAY
     Route: 048
     Dates: start: 20170223, end: 20220927
  2. PIFELTRO [Suspect]
     Active Substance: DORAVIRINE
     Indication: HIV infection
     Dosage: 100 MILLIGRAM/DAY
     Route: 048
     Dates: start: 20220928
  3. DESCOVY [Suspect]
     Active Substance: EMTRICITABINE\TENOFOVIR ALAFENAMIDE FUMARATE
     Indication: HIV infection
     Dosage: 1 DOSAGE FORM/DAY
     Route: 048
     Dates: start: 20170223, end: 20240202
  4. NORVIR [Suspect]
     Active Substance: RITONAVIR
     Indication: HIV infection
     Dosage: 200 MILLIGRAM/DAY
     Route: 065
     Dates: start: 20170223, end: 20240202
  5. PREZISTA [Suspect]
     Active Substance: DARUNAVIR ETHANOLATE
     Indication: HIV infection
     Dosage: 1200 MILLIGRAM/DAY
     Route: 065
     Dates: start: 20170223, end: 20240202
  6. INTELENCE [Suspect]
     Active Substance: ETRAVIRINE
     Indication: HIV infection
     Dosage: 400 MILLIGRAM/DAY
     Route: 065
     Dates: start: 20170223, end: 20220927
  7. TIVICAY [Concomitant]
     Active Substance: DOLUTEGRAVIR SODIUM
     Indication: HIV infection
     Dosage: 50 MILLIGRAM/DAY
     Route: 048
     Dates: start: 20220928, end: 20240202
  8. ASTAT [LANOCONAZOLE] [Concomitant]
     Dosage: UNK
     Route: 051
     Dates: start: 20170223
  9. ADVATE [Concomitant]
     Active Substance: ANTIHEMOPHILIC FACTOR, HUMAN RECOMBINANT
     Dosage: UNK
     Route: 065
     Dates: start: 20170223, end: 20181127
  10. URSO [Concomitant]
     Active Substance: URSODIOL
     Dosage: UNK
     Route: 065
     Dates: start: 20170223
  11. RABEPRAZOLE SODIUM [Concomitant]
     Active Substance: RABEPRAZOLE SODIUM
     Dosage: UNK
     Route: 048
     Dates: start: 20170223
  12. CARBOCYSTEINE [Concomitant]
     Active Substance: CARBOCYSTEINE
     Dosage: UNK
     Route: 065
     Dates: start: 20170223, end: 20181225
  13. CARBOCYSTEINE [Concomitant]
     Active Substance: CARBOCYSTEINE
     Dosage: UNK
     Route: 065
     Dates: start: 20190227
  14. LIVACT [ISOLEUCINE;LEUCINE;VALINE] [Concomitant]
     Indication: Liver disorder
     Dosage: UNK
     Route: 048
     Dates: start: 20170223

REACTIONS (6)
  - Liver transplant [Unknown]
  - Hepatocellular carcinoma [Not Recovered/Not Resolved]
  - Adverse event [Unknown]
  - Drug resistance [Not Recovered/Not Resolved]
  - Osteoporosis [Not Recovered/Not Resolved]
  - Drug ineffective [Unknown]

NARRATIVE: CASE EVENT DATE: 20170622
